FAERS Safety Report 13868207 (Version 1)
Quarter: 2017Q3

REPORT INFORMATION
  Report Type: Report from Study
  Country: None (occurrence: CA)
  Receive Date: 20170814
  Receipt Date: 20170814
  Transmission Date: 20171127
  Serious: Yes (Death, Hospitalization, Other)
  Sender: FDA-Public Use
  Company Number: CA-ABBVIE-17P-028-2069779-00

PATIENT
  Age: 68 Year
  Sex: Male

DRUGS (2)
  1. COVERSYL [Concomitant]
     Active Substance: PERINDOPRIL
     Indication: PRODUCT USED FOR UNKNOWN INDICATION
  2. LUPRON DEPOT [Suspect]
     Active Substance: LEUPROLIDE ACETATE
     Indication: PROSTATE CANCER
     Route: 030
     Dates: start: 20150803

REACTIONS (3)
  - Pleural effusion [Unknown]
  - Death [Fatal]
  - Metastatic neoplasm [Unknown]

NARRATIVE: CASE EVENT DATE: 20170602
